FAERS Safety Report 12616522 (Version 6)
Quarter: 2018Q1

REPORT INFORMATION
  Report Type: Report from Study
  Country: US (occurrence: US)
  Receive Date: 20160802
  Receipt Date: 20180111
  Transmission Date: 20180508
  Serious: Yes (Hospitalization)
  Sender: FDA-Public Use
  Company Number: US-ACTELION-A-NJ2016-138799

PATIENT
  Age: 20 Year
  Sex: Male
  Weight: 58.96 kg

DRUGS (7)
  1. LASIX [Concomitant]
     Active Substance: FUROSEMIDE
     Dosage: 40 MG, BID
     Dates: start: 201607
  2. REMODULIN [Concomitant]
     Active Substance: TREPROSTINIL
     Dosage: 130 NG/KG, PER MIN
     Dates: start: 20160616
  3. DIGOXIN. [Concomitant]
     Active Substance: DIGOXIN
     Dosage: 0.12 MG, QD
  4. OPSUMIT [Suspect]
     Active Substance: MACITENTAN
     Indication: PULMONARY HYPERTENSION
     Dosage: 10 MG, QD
     Route: 048
     Dates: start: 20150803
  5. COUMADIN [Concomitant]
     Active Substance: WARFARIN SODIUM
     Dosage: 4 MG, QD
     Dates: start: 201607
  6. REMODULIN [Concomitant]
     Active Substance: TREPROSTINIL
     Dosage: 123 NG/KG, PER MIN
     Dates: start: 20160622
  7. ADCIRCA [Concomitant]
     Active Substance: TADALAFIL
     Dosage: 40 MG, QD
     Dates: start: 201008

REACTIONS (6)
  - Lung transplant [Unknown]
  - Dyspnoea [Unknown]
  - Cardioversion [Unknown]
  - Pyrexia [Unknown]
  - Atrial flutter [Recovered/Resolved]
  - Pulmonary hypertension [Unknown]

NARRATIVE: CASE EVENT DATE: 20160716
